FAERS Safety Report 7123155-7 (Version None)
Quarter: 2010Q4

REPORT INFORMATION
  Report Type: 
  Country: None (occurrence: None)
  Receive Date: 20101125
  Receipt Date: 20101115
  Transmission Date: 20110411
  Serious: Yes (Hospitalization)
  Sender: FDA-Public Use
  Company Number: US-BIOGENIDEC-2010BI040099

PATIENT
  Age: 48 Year
  Sex: Male

DRUGS (2)
  1. TYSABRI [Suspect]
     Indication: MULTIPLE SCLEROSIS
     Route: 042
     Dates: start: 20090904
  2. TYSABRI [Suspect]
     Route: 042
     Dates: start: 20061228, end: 20080620

REACTIONS (2)
  - PNEUMONIA [None]
  - URINARY TRACT INFECTION [None]
